FAERS Safety Report 4759470-1 (Version None)
Quarter: 2005Q3

REPORT INFORMATION
  Report Type: 
  Country: None (occurrence: None)
  Receive Date: 20050831
  Receipt Date: 20050818
  Transmission Date: 20060218
  Serious: Yes (Other)
  Sender: FDA-Public Use
  Company Number: 2005-03075

PATIENT
  Age: 44 Year
  Sex: Female
  Weight: 77.1 kg

DRUGS (8)
  1. PREDNISONE [Suspect]
     Indication: ASTHMA
     Dosage: 20 MG, SINGLE, ORAL; 60 MG, SINGLE, ORAL
     Route: 048
     Dates: start: 20050308, end: 20050308
  2. PREDNISONE [Suspect]
     Indication: ASTHMA
     Dosage: 20 MG, SINGLE, ORAL; 60 MG, SINGLE, ORAL
     Route: 048
     Dates: start: 20050311, end: 20050311
  3. SOLU-MEDROL [Suspect]
     Indication: ASTHMA
     Dosage: INTRAVENOUS
     Route: 042
     Dates: start: 20050309, end: 20050309
  4. VICODIN [Suspect]
     Indication: CHEST PAIN
     Dosage: 2 TABLET, PRN, ORAL
     Route: 048
     Dates: start: 20030801
  5. LISINOPRIL TABLET [Concomitant]
  6. PROZAC [Concomitant]
  7. ALBUTEROL [Concomitant]
  8. AZITHROMYCIN [Concomitant]

REACTIONS (8)
  - ASTHMA [None]
  - CHEST PAIN [None]
  - FEELING ABNORMAL [None]
  - LIMB CRUSHING INJURY [None]
  - LOSS OF CONSCIOUSNESS [None]
  - MEMORY IMPAIRMENT [None]
  - NAUSEA [None]
  - ROAD TRAFFIC ACCIDENT [None]
